FAERS Safety Report 7957017-X (Version None)
Quarter: 2011Q4

REPORT INFORMATION
  Report Type: 
  Country: None (occurrence: None)
  Receive Date: 20111205
  Receipt Date: 20111205
  Transmission Date: 20120403
  Serious: Yes (Hospitalization)
  Sender: FDA-Public Use
  Company Number: None

PATIENT
  Age: 78 Year
  Sex: Male

DRUGS (8)
  1. DONEPEZIL HCL [Concomitant]
     Route: 048
  2. CALCIUM CARBONATE -CALCIUM [Concomitant]
     Route: 048
  3. DABIGATRAN [Suspect]
     Indication: ATRIAL FIBRILLATION
     Dosage: NOT DOCUMENTED
     Route: 048
     Dates: start: 20111015, end: 20111015
  4. CHOLECALCIFEROL -VITAMIN D3 [Concomitant]
     Route: 048
  5. DRONEDARONE HCL [Concomitant]
     Route: 048
  6. METOPROLOL [Concomitant]
     Route: 048
  7. ATORVASTATIN [Concomitant]
     Route: 048
  8. AMLODIPINE [Concomitant]

REACTIONS (1)
  - HAEMATURIA [None]
